FAERS Safety Report 7097920-9 (Version None)
Quarter: 2010Q4

REPORT INFORMATION
  Report Type: 
  Country: None (occurrence: None)
  Receive Date: 20101112
  Receipt Date: 20101101
  Transmission Date: 20110411
  Serious: Yes (Hospitalization)
  Sender: FDA-Public Use
  Company Number: IT-JNJFOC-20101100853

PATIENT
  Sex: Female

DRUGS (5)
  1. LEVOFLOXACIN [Suspect]
     Indication: PYREXIA
     Route: 042
  2. ASPIRIN [Concomitant]
     Indication: ILL-DEFINED DISORDER
     Route: 065
  3. SERETIDE [Concomitant]
     Indication: ILL-DEFINED DISORDER
     Route: 065
  4. SPIRIVA [Concomitant]
     Indication: ILL-DEFINED DISORDER
     Route: 065
  5. NORVASC [Concomitant]
     Indication: ILL-DEFINED DISORDER
     Route: 065

REACTIONS (2)
  - BRONCHOSPASM [None]
  - RASH [None]
